FAERS Safety Report 15819884 (Version 2)
Quarter: 2019Q1

REPORT INFORMATION
  Report Type: Spontaneous
  Country: GB (occurrence: GB)
  Receive Date: 20190114
  Receipt Date: 20190130
  Transmission Date: 20190417
  Serious: Yes (Congenital Anomaly, Other)
  Sender: FDA-Public Use
  Company Number: GB-TEVA-2019-GB-998348

PATIENT
  Age: 25 Year
  Sex: Female
  Weight: 47.62 kg

DRUGS (2)
  1. PROMETHAZINE TEOCLATE [Suspect]
     Active Substance: PROMETHAZINE TEOCLATE
     Indication: MORNING SICKNESS
     Dosage: 1 DOSAGE FORMS DAILY;
     Route: 048
     Dates: start: 20180425, end: 20180430
  2. FOLIC ACID. [Concomitant]
     Active Substance: FOLIC ACID

REACTIONS (4)
  - Restless legs syndrome [Recovered/Resolved]
  - Maternal exposure during pregnancy [Unknown]
  - Somnolence [Recovered/Resolved]
  - Abortion spontaneous [Unknown]

NARRATIVE: CASE EVENT DATE: 20180425
